FAERS Safety Report 6404920-8 (Version None)
Quarter: 2009Q4

REPORT INFORMATION
  Report Type: 
  Country: None (occurrence: None)
  Receive Date: 20091013
  Receipt Date: 20090928
  Transmission Date: 20100525
  Serious: Yes (Death, Hospitalization)
  Sender: FDA-Public Use
  Company Number: IDA-00269

PATIENT
  Age: 72 Year
  Sex: Female

DRUGS (2)
  1. PROPRANOLOL [Suspect]
     Dates: start: 20070901
  2. PREDNISOLONE [Suspect]
     Dates: start: 20070901

REACTIONS (3)
  - DRUG DISPENSING ERROR [None]
  - FALL [None]
  - LOSS OF CONSCIOUSNESS [None]
